FAERS Safety Report 5293191-4 (Version None)
Quarter: 2007Q2

REPORT INFORMATION
  Report Type: 
  Country: None (occurrence: None)
  Receive Date: 20070405
  Receipt Date: 20070315
  Transmission Date: 20071010
  Serious: Yes (Hospitalization)
  Sender: FDA-Public Use
  Company Number: DE200703003320

PATIENT
  Age: 49 Year
  Sex: Female
  Weight: 68 kg

DRUGS (12)
  1. ZYPREXA [Suspect]
     Indication: DEPRESSION
     Dosage: SEE IMAGE; ORAL
     Route: 048
     Dates: start: 20060503, end: 20060503
  2. ZYPREXA [Suspect]
     Indication: DEPRESSION
     Dosage: SEE IMAGE; ORAL
     Route: 048
     Dates: start: 20060504, end: 20060509
  3. ZYPREXA [Suspect]
     Indication: DEPRESSION
     Dosage: SEE IMAGE; ORAL
     Route: 048
     Dates: start: 20060515, end: 20060529
  4. ZYPREXA [Suspect]
     Indication: DEPRESSION
     Dosage: SEE IMAGE; ORAL
     Route: 048
     Dates: start: 20060503, end: 20060608
  5. ZYPREXA [Suspect]
     Indication: DEPRESSION
     Dosage: SEE IMAGE; ORAL
     Route: 048
     Dates: start: 20060609, end: 20060610
  6. ZYPREXA [Suspect]
     Indication: DEPRESSION
     Dosage: SEE IMAGE; ORAL
     Route: 048
     Dates: start: 20060611, end: 20060611
  7. ZYPREXA [Suspect]
     Indication: DEPRESSION
     Dosage: SEE IMAGE; ORAL
     Route: 048
     Dates: start: 20060612, end: 20060613
  8. ZYPREXA [Suspect]
     Indication: DEPRESSION
     Dosage: SEE IMAGE; ORAL
     Route: 048
     Dates: start: 20060614, end: 20060614
  9. CYMBALTA [Suspect]
     Indication: DEPRESSION
     Dosage: 90 MG, DAILY (1/D); ORAL, 120 MG, DAILY (1/D); ORAL
     Route: 048
     Dates: start: 20050430, end: 20060517
  10. CYMBALTA [Suspect]
     Indication: DEPRESSION
     Dosage: 90 MG, DAILY (1/D); ORAL, 120 MG, DAILY (1/D); ORAL
     Route: 048
     Dates: start: 20060518, end: 20060706
  11. DOGMATIL (SULPIRIDE) [Concomitant]
  12. REMERGIL (MIRTAAPINE) [Concomitant]

REACTIONS (3)
  - ALANINE AMINOTRANSFERASE INCREASED [None]
  - ASPARTATE AMINOTRANSFERASE INCREASED [None]
  - GAMMA-GLUTAMYLTRANSFERASE INCREASED [None]
